FAERS Safety Report 7063298-X (Version None)
Quarter: 2010Q4

REPORT INFORMATION
  Report Type: 
  Country: None (occurrence: None)
  Receive Date: 20101026
  Receipt Date: 20100714
  Transmission Date: 20110411
  Serious: No
  Sender: FDA-Public Use
  Company Number: US-PFIZER INC-2010088730

PATIENT
  Sex: Female

DRUGS (1)
  1. LIPITOR [Suspect]
     Indication: BLOOD CHOLESTEROL INCREASED
     Dosage: 20 MG,
     Route: 048
     Dates: start: 20090101, end: 20100101

REACTIONS (4)
  - ARTHRALGIA [None]
  - FEELING ABNORMAL [None]
  - MYALGIA [None]
  - PAIN IN EXTREMITY [None]
